FAERS Safety Report 4935245-5 (Version None)
Quarter: 2006Q1

REPORT INFORMATION
  Report Type: 
  Country: None (occurrence: None)
  Receive Date: 20060302
  Receipt Date: 20060224
  Transmission Date: 20060701
  Serious: Yes (Other)
  Sender: FDA-Public Use
  Company Number: 006728

PATIENT
  Sex: Female

DRUGS (8)
  1. MEDROXYPROGESTERONE ACETATE [Suspect]
     Dosage: ORAL
     Route: 048
     Dates: start: 19890101, end: 20010101
  2. PREMPHASE (PREMARIN;CYCRIN 14/14) [Suspect]
     Dosage: ORAL
     Route: 048
     Dates: start: 19890101, end: 20010101
  3. CYCRIN [Suspect]
     Dosage: ORAL
     Route: 048
     Dates: start: 19890101, end: 20010101
  4. PREMPRO [Suspect]
     Dosage: ORAL
     Route: 048
     Dates: start: 19890101, end: 20010101
  5. PREMARIN [Suspect]
     Dosage: ORAL
     Route: 048
     Dates: start: 19890101, end: 20010101
  6. PROVERA [Concomitant]
  7. ESTRATAB [Suspect]
     Route: 048
     Dates: start: 19890101, end: 20010101
  8. ESTRADIOL [Suspect]
     Dates: start: 19890101, end: 20010101

REACTIONS (1)
  - BREAST CANCER FEMALE [None]
